FAERS Safety Report 13358719 (Version 1)
Quarter: 2017Q1

REPORT INFORMATION
  Report Type: Spontaneous
  Country: US (occurrence: US)
  Receive Date: 20170322
  Receipt Date: 20170322
  Transmission Date: 20170429
  Serious: Yes (Hospitalization)
  Sender: FDA-Public Use
  Company Number: US-PFIZER INC-2017116751

PATIENT
  Age: 82 Year
  Sex: Female

DRUGS (4)
  1. NORTHERA [Suspect]
     Active Substance: DROXIDOPA
     Dosage: 600 MG, DAILY (200 MG,3 IN 1 D)
     Route: 048
  2. NORTHERA [Suspect]
     Active Substance: DROXIDOPA
     Indication: AUTONOMIC FAILURE SYNDROME
     Dosage: UNK (TITRATION SCHEDULE B (COMPLETE))
     Route: 048
     Dates: start: 20161217
  3. ROBITUSSIN (GUAIFENESIN) [Suspect]
     Active Substance: GUAIFENESIN
     Indication: NASOPHARYNGITIS
  4. ROBITUSSIN (GUAIFENESIN) [Suspect]
     Active Substance: GUAIFENESIN
     Indication: COUGH
     Dosage: UNK (THREE DOSES OF ROBITUSSIN /OVER A TWO DAY PERIOD)
     Dates: start: 201701

REACTIONS (2)
  - Feeling abnormal [Unknown]
  - Nasopharyngitis [Unknown]

NARRATIVE: CASE EVENT DATE: 201701
